FAERS Safety Report 14480071 (Version 1)
Quarter: 2018Q1

REPORT INFORMATION
  Report Type: Spontaneous
  Country: IT (occurrence: IT)
  Receive Date: 20180202
  Receipt Date: 20180202
  Transmission Date: 20180509
  Serious: Yes (Other)
  Sender: FDA-Public Use
  Company Number: IT-BAYER-2018-020820

PATIENT
  Age: 60 Year
  Sex: Male
  Weight: 175 kg

DRUGS (1)
  1. GADOVIST [Suspect]
     Active Substance: GADOBUTROL
     Indication: NUCLEAR MAGNETIC RESONANCE IMAGING HEART
     Dosage: 0.15 MMOL, ONCE
     Route: 042
     Dates: start: 20180124, end: 20180124

REACTIONS (4)
  - Bradycardia [Recovered/Resolved]
  - Abdominal pain [Recovered/Resolved]
  - Cold sweat [Recovered/Resolved]
  - Hypotension [Recovered/Resolved]

NARRATIVE: CASE EVENT DATE: 20180124
